FAERS Safety Report 13405358 (Version 3)
Quarter: 2017Q4

REPORT INFORMATION
  Report Type: Report from Study
  Country: IT (occurrence: IT)
  Receive Date: 20170405
  Receipt Date: 20171019
  Transmission Date: 20180320
  Serious: Yes (Hospitalization)
  Sender: FDA-Public Use
  Company Number: IT-PFIZER INC-2017141307

PATIENT
  Age: 69 Year
  Sex: Female

DRUGS (11)
  1. RITUXIMAB. [Suspect]
     Active Substance: RITUXIMAB
     Dosage: 551.25 MG, CYCLIC
     Route: 042
     Dates: start: 20170124, end: 20170124
  2. PALONOSETRON HYDROCHLORIDE. [Concomitant]
     Active Substance: PALONOSETRON HYDROCHLORIDE
     Indication: ANTIEMETIC SUPPORTIVE CARE
     Dosage: 0.25 MG, DAILY
     Route: 042
     Dates: start: 20170124, end: 20170126
  3. ETOPOSIDE TEVA [Suspect]
     Active Substance: ETOPOSIDE
     Indication: CHEMOTHERAPY
     Dosage: 661.5 MG, CYCLIC
     Route: 042
     Dates: start: 20170124, end: 20170126
  4. MESNA. [Concomitant]
     Active Substance: MESNA
     Indication: CHEMOTHERAPY TOXICITY ATTENUATION
     Dosage: 4704 MG, DAILY
     Route: 042
     Dates: start: 20170124, end: 20170126
  5. RANITIDINE HYDROCHLORIDE. [Concomitant]
     Active Substance: RANITIDINE HYDROCHLORIDE
     Indication: ANTACID THERAPY
     Dosage: 100 MG, DAILY
     Route: 042
     Dates: start: 20170124, end: 20170126
  6. EPIRUBICIN HCL [Suspect]
     Active Substance: EPIRUBICIN HYDROCHLORIDE
     Indication: CHEMOTHERAPY
     Dosage: 147 MG, CYCLIC
     Route: 042
     Dates: start: 20170124, end: 20170124
  7. LONQUEX [Suspect]
     Active Substance: LIPEGFILGRASTIM
     Indication: PROPHYLAXIS
     Dosage: 6 MG, DAILY
     Route: 058
     Dates: start: 20170128, end: 20170128
  8. APREPITANT. [Concomitant]
     Active Substance: APREPITANT
     Indication: ANTIEMETIC SUPPORTIVE CARE
     Dosage: 280 MG, CYCLIC
     Route: 048
     Dates: start: 20170124, end: 20170126
  9. DEXAMETHASONE. [Concomitant]
     Active Substance: DEXAMETHASONE
     Indication: ANTIINFLAMMATORY THERAPY
     Dosage: 48 MG, DAILY
     Route: 042
     Dates: start: 20170124, end: 20170126
  10. HOLOXAN [Suspect]
     Active Substance: IFOSFAMIDE
     Indication: CHEMOTHERAPY
     Dosage: 11025 MG, CYCLIC
     Route: 042
     Dates: start: 20170124, end: 20170126
  11. CHLORPHENAMINE MALEATE [Concomitant]
     Active Substance: CHLORPHENIRAMINE MALEATE
     Indication: ANTIALLERGIC THERAPY
     Dosage: UNK
     Route: 042
     Dates: start: 20170124

REACTIONS (4)
  - Odynophagia [Recovered/Resolved]
  - Mucosal inflammation [Recovered/Resolved]
  - Dysphagia [Recovered/Resolved]
  - Pyrexia [Recovered/Resolved]

NARRATIVE: CASE EVENT DATE: 20170202
